FAERS Safety Report 17103785 (Version 1)
Quarter: 2019Q4

REPORT INFORMATION
  Report Type: Spontaneous
  Country: CA (occurrence: CA)
  Receive Date: 20191203
  Receipt Date: 20191203
  Transmission Date: 20200122
  Serious: Yes (Hospitalization)
  Sender: FDA-Public Use
  Company Number: CA-ROCHE-2479821

PATIENT
  Age: 55 Year
  Sex: Female

DRUGS (8)
  1. BEVACIZUMAB. [Suspect]
     Active Substance: BEVACIZUMAB
     Indication: HER-2 POSITIVE BREAST CANCER
     Route: 042
  2. DOCETAXEL. [Suspect]
     Active Substance: DOCETAXEL
     Indication: HER-2 POSITIVE BREAST CANCER
     Route: 042
  3. CARBOPLATIN. [Suspect]
     Active Substance: CARBOPLATIN
     Indication: HER-2 POSITIVE BREAST CANCER
     Route: 042
  4. AVAPRO [Concomitant]
     Active Substance: IRBESARTAN
  5. LOPERAMIDE [Concomitant]
     Active Substance: LOPERAMIDE
  6. BROMPHENIRAMINE MALEATE;PHENYLEPHRINE HYDROCHLORIDE;PHENYLPROPANOLAMIN [Concomitant]
  7. GRAVOL [Concomitant]
     Active Substance: DIMENHYDRINATE
  8. HERCEPTIN [Suspect]
     Active Substance: TRASTUZUMAB
     Indication: HER-2 POSITIVE BREAST CANCER
     Route: 042

REACTIONS (7)
  - Acute kidney injury [Recovered/Resolved]
  - Clostridium difficile infection [Recovered/Resolved]
  - Hypovolaemia [Recovered/Resolved]
  - Dehydration [Recovered/Resolved]
  - Diarrhoea [Recovered/Resolved]
  - Mucosal inflammation [Recovered/Resolved]
  - Palmar-plantar erythrodysaesthesia syndrome [Recovered/Resolved]
